FAERS Safety Report 21043585 (Version 1)
Quarter: 2022Q3

REPORT INFORMATION
  Report Type: Spontaneous
  Country: US (occurrence: US)
  Receive Date: 20220705
  Receipt Date: 20220705
  Transmission Date: 20221026
  Serious: No
  Sender: FDA-Public Use
  Company Number: US-SAREPTA THERAPEUTICS INC.-SRP2021-001916

PATIENT
  Age: 10 Year
  Sex: Female
  Weight: 28.6 kg

DRUGS (10)
  1. EXONDYS 51 [Suspect]
     Active Substance: ETEPLIRSEN
     Indication: Duchenne muscular dystrophy
     Dosage: 900 MILLIGRAM, WEEKLY
     Route: 042
     Dates: start: 20211101, end: 20211111
  2. EXONDYS 51 [Suspect]
     Active Substance: ETEPLIRSEN
     Dosage: 700 MILLIGRAM, WEEKLY
     Route: 042
     Dates: start: 20210222, end: 20211101
  3. LMX 4 [Concomitant]
     Indication: Anaesthetic premedication
     Dosage: 30 GRAM
     Route: 061
     Dates: start: 20191218
  4. LIDOCAINE\PRILOCAINE [Concomitant]
     Active Substance: LIDOCAINE\PRILOCAINE
     Indication: Anaesthetic premedication
     Dosage: 30 GRAM (2.5/2.5%)
     Route: 061
     Dates: start: 20201125
  5. LIDOCAINE\PRILOCAINE [Concomitant]
     Active Substance: LIDOCAINE\PRILOCAINE
     Dosage: 30 GRAM (2.5/2.5%)
     Route: 061
     Dates: start: 20211101
  6. LMX 4 PLUS [Concomitant]
     Indication: Anaesthetic premedication
     Dosage: 4%
     Route: 061
     Dates: start: 20191218
  7. LMX 4 PLUS [Concomitant]
     Dosage: 4%
     Route: 061
     Dates: start: 20210506
  8. HEPARIN LOCK FLUSH [Concomitant]
     Active Substance: HEPARIN SODIUM
     Indication: Catheter management
     Dosage: 500 UNITS, AS DIRECTED
     Route: 042
     Dates: start: 20211101
  9. SODIUM CHLORIDE [Concomitant]
     Active Substance: SODIUM CHLORIDE
     Indication: Catheter management
     Dosage: 10 MILLILITER, AS DIRECTED
     Route: 042
     Dates: start: 20211101
  10. SODIUM CHLORIDE [Concomitant]
     Active Substance: SODIUM CHLORIDE
     Indication: Catheter management
     Dosage: 50 MILLILITER, AS DIRECTED
     Route: 042
     Dates: start: 20211101

REACTIONS (1)
  - COVID-19 [Unknown]

NARRATIVE: CASE EVENT DATE: 20211101
